FAERS Safety Report 5620543-2 (Version None)
Quarter: 2008Q1

REPORT INFORMATION
  Report Type: 
  Country: None (occurrence: None)
  Receive Date: 20080208
  Receipt Date: 20080129
  Transmission Date: 20080703
  Serious: Yes (Hospitalization)
  Sender: FDA-Public Use
  Company Number: FR-ELI_LILLY_AND_COMPANY-FR200801006055

PATIENT
  Age: 79 Year
  Sex: Female

DRUGS (5)
  1. PROZAC [Suspect]
     Dosage: 20 MG, DAILY (1/D)
     Route: 048
  2. MOPRAL [Concomitant]
     Dosage: 20 MG, UNKNOWN
     Route: 048
  3. OROCAL D(3) [Concomitant]
     Dosage: UNK, UNKNOWN
     Route: 048
  4. URBANYL /FRA/ [Concomitant]
     Dosage: 10 MG, UNKNOWN
     Route: 048
  5. KARDEGIC /FRA/ [Concomitant]
     Indication: CEREBROVASCULAR ACCIDENT
     Dosage: 75 MG, DAILY (1/D)
     Route: 048

REACTIONS (8)
  - CEREBRAL HAEMATOMA [None]
  - CEREBROVASCULAR ACCIDENT [None]
  - DEMYELINATION [None]
  - FALL [None]
  - HEMIPLEGIA [None]
  - INJURY [None]
  - LEUKOARAIOSIS [None]
  - SUBARACHNOID HAEMORRHAGE [None]
